FAERS Safety Report 5447925-6 (Version None)
Quarter: 2007Q3

REPORT INFORMATION
  Report Type: 
  Country: None (occurrence: None)
  Receive Date: 20070910
  Receipt Date: 20070829
  Transmission Date: 20080115
  Serious: Yes (Other)
  Sender: FDA-Public Use
  Company Number: FR-PFIZER INC-2007074664

PATIENT
  Sex: Female

DRUGS (1)
  1. CHAMPIX [Suspect]
     Indication: SMOKING CESSATION THERAPY

REACTIONS (2)
  - SPEECH DISORDER [None]
  - WEIGHT INCREASED [None]
